FAERS Safety Report 6424813-X (Version None)
Quarter: 2009Q4

REPORT INFORMATION
  Report Type: 
  Country: None (occurrence: None)
  Receive Date: 20091103
  Receipt Date: 20091022
  Transmission Date: 20100525
  Serious: Yes (Other)
  Sender: FDA-Public Use
  Company Number: PHEH2009US13409

PATIENT
  Sex: Male

DRUGS (5)
  1. EXJADE [Suspect]
     Indication: TRANSFUSION
     Dosage: 500 MG, QD
     Route: 048
     Dates: start: 20071026, end: 20080801
  2. EXJADE [Suspect]
     Dosage: 500 MG, QD
     Dates: start: 20090801
  3. TYLENOL W/ CODEINE [Concomitant]
     Indication: PAIN
  4. FOLIC ACID [Concomitant]
     Dosage: DAILY
  5. MIRALAX [Concomitant]

REACTIONS (4)
  - INAPPROPRIATE SCHEDULE OF DRUG ADMINISTRATION [None]
  - MALAISE [None]
  - SERUM FERRITIN INCREASED [None]
  - SPLEEN DISORDER [None]
